FAERS Safety Report 8832580 (Version 1)
Quarter: 2012Q4

REPORT INFORMATION
  Report Type: Spontaneous
  Country: US (occurrence: None)
  Receive Date: 20121009
  Receipt Date: 20121009
  Transmission Date: 20130627
  Serious: Yes (Other)
  Sender: FDA-Public Use
  Company Number: None

PATIENT
  Age: 84 Year
  Sex: Female

DRUGS (1)
  1. IRBESARTAN AND HYDROCHLOROTHIAZIDE [Suspect]
     Indication: HYPERTENSION
     Dosage: 1 tablet daily by mouth
     Route: 048
     Dates: start: 201204, end: 201209

REACTIONS (3)
  - Product substitution issue [None]
  - Confusional state [None]
  - Blood pressure increased [None]
